FAERS Safety Report 8050232-9 (Version None)
Quarter: 2012Q1

REPORT INFORMATION
  Report Type: 
  Country: None (occurrence: None)
  Receive Date: 20120117
  Receipt Date: 20120113
  Transmission Date: 20120608
  Serious: Yes (Other)
  Sender: FDA-Public Use
  Company Number: US-PFIZER INC-2012011046

PATIENT
  Sex: Female
  Weight: 60.771 kg

DRUGS (14)
  1. LIPITOR [Suspect]
     Indication: LOW DENSITY LIPOPROTEIN ABNORMAL
     Dosage: 40 MG, 1X/DAY
     Route: 048
  2. CALCIUM [Concomitant]
     Dosage: UNK
  3. ACETYLSALICYLIC ACID [Concomitant]
     Indication: HYPERTENSION
     Dosage: 81 MG, 1X/DAY
  4. VITAMIN E [Concomitant]
     Dosage: 200 MG, 1X/DAY
  5. FISH OIL [Concomitant]
     Dosage: 100 MG, DAILY
  6. ALTACE [Concomitant]
     Indication: HYPERTENSION
     Dosage: 10 MG, 1X/DAY
  7. VITAMIN D [Concomitant]
     Dosage: UNK
  8. VITAMIN C [Concomitant]
     Dosage: 500 MG, DAILY
  9. XANAX [Concomitant]
     Indication: ANXIETY
     Dosage: UNK
  10. NORVASC [Concomitant]
     Indication: HYPERTENSION
     Dosage: 2.5 MG, 1X/DAY
  11. ALDACTAZIDE [Concomitant]
     Indication: HYPERTENSION
     Dosage: SPIRONOLACTONE 25 MG/HYDROCHLOROTHIAZDE 25 MG, EVERY OTHER DAY
  12. COENZYME Q10 [Concomitant]
     Dosage: 200 MG, 1X/DAY
  13. LIPITOR [Suspect]
     Indication: BLOOD CHOLESTEROL INCREASED
  14. PRAVACHOL [Suspect]
     Indication: BLOOD CHOLESTEROL INCREASED
     Dosage: UNK

REACTIONS (3)
  - MYALGIA [None]
  - ADRENAL DISORDER [None]
  - ANGINA PECTORIS [None]
